FAERS Safety Report 6184195-8 (Version None)
Quarter: 2009Q2

REPORT INFORMATION
  Report Type: 
  Country: None (occurrence: None)
  Receive Date: 20090508
  Receipt Date: 20090428
  Transmission Date: 20091009
  Serious: Yes (Hospitalization)
  Sender: FDA-Public Use
  Company Number: FR-PFIZER INC-2009204547

PATIENT
  Age: 75 Year

DRUGS (11)
  1. ALDACTONE [Suspect]
     Indication: CARDIAC FAILURE
     Dosage: 50 MG, 1X/DAY
     Route: 048
     Dates: start: 20081106, end: 20081201
  2. LASIX [Suspect]
     Dosage: 500 MG, 1X/DAY
     Dates: end: 20081130
  3. CORTANCYL [Concomitant]
     Dosage: 15 MG, 1X/DAY
     Route: 048
  4. DIFFU K [Concomitant]
     Dosage: 1 DF, 1X/DAY
     Route: 048
  5. NEXIUM [Concomitant]
     Dosage: 40 MG, 1X/DAY
     Route: 048
  6. ZANIDIP [Concomitant]
     Dosage: 10 MG, 1X/DAY
     Route: 048
  7. NEBILOX [Concomitant]
     Dosage: 5 MG, 1X/DAY
     Route: 048
  8. PLAVIX [Concomitant]
     Dosage: 75 MG, 1X/DAY
     Route: 048
  9. TAHOR [Concomitant]
     Dosage: 40 MG, 1X/DAY
     Route: 048
  10. FERROUS SULFATE TAB [Concomitant]
     Dosage: UNK
     Route: 048
  11. THALIDOMIDE [Concomitant]
     Dosage: 50 MG, 1X/DAY
     Route: 048

REACTIONS (3)
  - DEHYDRATION [None]
  - GENERAL PHYSICAL HEALTH DETERIORATION [None]
  - RENAL FAILURE [None]
